FAERS Safety Report 18654895 (Version 1)
Quarter: 2020Q4

REPORT INFORMATION
  Report Type: Spontaneous
  Country: JP (occurrence: JP)
  Receive Date: 20201223
  Receipt Date: 20201223
  Transmission Date: 20210114
  Serious: Yes (Other)
  Sender: FDA-Public Use
  Company Number: JP-PFIZER INC-2020500827

PATIENT
  Age: 65 Year
  Sex: Male

DRUGS (1)
  1. CHAMPIX 1MG [Suspect]
     Active Substance: VARENICLINE TARTRATE
     Dosage: UNK
     Route: 048
     Dates: start: 20200924, end: 20201114

REACTIONS (3)
  - Feeling abnormal [Unknown]
  - Blood triglycerides increased [Unknown]
  - Blood bilirubin decreased [Unknown]

NARRATIVE: CASE EVENT DATE: 20200924
